FAERS Safety Report 6283399-3 (Version None)
Quarter: 2009Q3

REPORT INFORMATION
  Report Type: 
  Country: None (occurrence: None)
  Receive Date: 20090724
  Receipt Date: 20090408
  Transmission Date: 20100115
  Serious: No
  Sender: FDA-Public Use
  Company Number: US-ALEXION-A200900195

PATIENT
  Sex: Female
  Weight: 64.4 kg

DRUGS (3)
  1. SOLIRIS [Suspect]
     Indication: HAEMOGLOBINURIA
     Dosage: UNK
  2. CYCLOSPORINE [Suspect]
  3. PREDNISONE TAB [Suspect]
     Dosage: UNK
     Route: 048

REACTIONS (1)
  - BLOOD PRESSURE INCREASED [None]
